FAERS Safety Report 8361350-X (Version None)
Quarter: 2012Q2

REPORT INFORMATION
  Report Type: 
  Country: None (occurrence: None)
  Receive Date: 20120515
  Receipt Date: 20120507
  Transmission Date: 20120825
  Serious: Yes (Other)
  Sender: FDA-Public Use
  Company Number: US-BAYER-2012-044716

PATIENT
  Age: 47 Year
  Sex: Female

DRUGS (2)
  1. BETASERON [Suspect]
     Indication: RELAPSING-REMITTING MULTIPLE SCLEROSIS
     Dosage: UNK
     Dates: start: 20120405, end: 20120423
  2. CONTRACEPTIVES NOS [Concomitant]
     Indication: POLYMENORRHOEA
     Dosage: UNK
     Dates: start: 20120502

REACTIONS (1)
  - HAEMATOCHEZIA [None]
